FAERS Safety Report 5508951-1 (Version None)
Quarter: 2007Q4

REPORT INFORMATION
  Report Type: 
  Country: None (occurrence: None)
  Receive Date: 20071031
  Receipt Date: 20070810
  Transmission Date: 20080405
  Serious: No
  Sender: FDA-Public Use
  Company Number: 2007PV033280

PATIENT
  Age: 58 Year
  Sex: Male

DRUGS (2)
  1. SYMLIN [Suspect]
     Indication: TYPE 2 DIABETES MELLITUS
     Dosage: 60 MCG; TID; SC
     Route: 058
     Dates: start: 20070801, end: 20070801
  2. BYETTA [Concomitant]

REACTIONS (2)
  - NAUSEA [None]
  - VOMITING [None]
